FAERS Safety Report 16140235 (Version 1)
Quarter: 2019Q1

REPORT INFORMATION
  Report Type: Spontaneous
  Country: US (occurrence: US)
  Receive Date: 20190226
  Receipt Date: 20190226
  Transmission Date: 20190418
  Serious: No
  Sender: FDA-Public Use
  Company Number: None

PATIENT
  Age: 32 Year
  Sex: Female

DRUGS (1)
  1. CYCLOSPORINE CAP 100MG MD [Suspect]
     Active Substance: CYCLOSPORINE
     Indication: LUNG TRANSPLANT

REACTIONS (4)
  - Cough [None]
  - Ligament sprain [None]
  - Cellulitis [None]
  - Sinus operation [None]

NARRATIVE: CASE EVENT DATE: 20181115
